FAERS Safety Report 4421044-X (Version None)
Quarter: 2004Q3

REPORT INFORMATION
  Report Type: 
  Country: None (occurrence: None)
  Receive Date: 20040809
  Receipt Date: 20040720
  Transmission Date: 20050211
  Serious: Yes (Hospitalization)
  Sender: FDA-Public Use
  Company Number: PHBS2004DK09762

PATIENT
  Age: 58 Year
  Sex: Female

DRUGS (2)
  1. FEMARA [Suspect]
     Dates: start: 20040426
  2. MAREVAN [Suspect]
     Dosage: 2.5 MG, UNK
     Dates: start: 20040301

REACTIONS (3)
  - EMBOLISM VENOUS [None]
  - INTERNATIONAL NORMALISED RATIO DECREASED [None]
  - THROMBOPHLEBITIS [None]
